FAERS Safety Report 10342772 (Version 1)
Quarter: 2014Q3

REPORT INFORMATION
  Report Type: Spontaneous
  Country: DK (occurrence: GB)
  Receive Date: 20140725
  Receipt Date: 20140725
  Transmission Date: 20150326
  Serious: Yes (Other)
  Sender: FDA-Public Use
  Company Number: GB-FRI-1000069302

PATIENT
  Age: 60 Year

DRUGS (3)
  1. TRAMADOL [Suspect]
     Active Substance: TRAMADOL
     Indication: ARTHRALGIA
     Dosage: 100 MG DAILY
  2. CITALOPRAM [Suspect]
     Active Substance: CITALOPRAM HYDROBROMIDE
     Dosage: OVERDOSE: 80 MG ONCE
     Route: 048
  3. CITALOPRAM [Suspect]
     Active Substance: CITALOPRAM HYDROBROMIDE
     Dosage: 40 MG DAILY
     Route: 048

REACTIONS (11)
  - Bruxism [Unknown]
  - Drug interaction [Unknown]
  - Accidental overdose [Unknown]
  - Medication error [Unknown]
  - Speech disorder [Unknown]
  - Unresponsive to stimuli [Unknown]
  - Fall [Unknown]
  - Disorientation [Unknown]
  - Skin discolouration [Unknown]
  - Muscle rigidity [Unknown]
  - Confusional state [Unknown]
